FAERS Safety Report 8174982-9 (Version None)
Quarter: 2012Q1

REPORT INFORMATION
  Report Type: 
  Country: None (occurrence: None)
  Receive Date: 20120229
  Receipt Date: 20120220
  Transmission Date: 20120608
  Serious: Yes (Other)
  Sender: FDA-Public Use
  Company Number: PHEH2012US004254

PATIENT
  Sex: Female

DRUGS (3)
  1. ESTRACE [Concomitant]
  2. EXELON [Suspect]
     Dosage: 4.6 MG\24H
     Route: 062
  3. EVISTA [Concomitant]

REACTIONS (5)
  - UTERINE PROLAPSE [None]
  - APPLICATION SITE DISCOLOURATION [None]
  - CYSTITIS [None]
  - APPLICATION SITE ERYTHEMA [None]
  - DRUG INEFFECTIVE [None]
